FAERS Safety Report 4493607-7 (Version None)
Quarter: 2004Q4

REPORT INFORMATION
  Report Type: 
  Country: None (occurrence: None)
  Receive Date: 20041102
  Receipt Date: 20041019
  Transmission Date: 20050328
  Serious: Yes (Other)
  Sender: FDA-Public Use
  Company Number: 2004239782US

PATIENT
  Age: 49 Year
  Sex: Female

DRUGS (6)
  1. DOXORUBICIN HCL [Suspect]
     Indication: BREAST CANCER FEMALE
     Dosage: CYCLIC
  2. CYCLOPHOSPHAMIDE [Suspect]
     Indication: BREAST CANCER FEMALE
  3. METHOTREXATE [Suspect]
     Indication: BREAST CANCER FEMALE
  4. FLUOROURACIL [Suspect]
     Indication: BREAST CANCER FEMALE
  5. CISPLATIN [Suspect]
     Indication: BREAST CANCER FEMALE
  6. CARMUSTINE [Suspect]
     Indication: BREAST CANCER FEMALE

REACTIONS (9)
  - BONE MARROW TRANSPLANT [None]
  - DEMYELINATION [None]
  - DRUG EFFECT DECREASED [None]
  - GLIOSIS [None]
  - HYPOTENSION [None]
  - LEUKOENCEPHALOPATHY [None]
  - OPTIC NERVE DISORDER [None]
  - RESPIRATORY DISORDER [None]
  - VISUAL ACUITY REDUCED [None]
